FAERS Safety Report 14509771 (Version 2)
Quarter: 2018Q1

REPORT INFORMATION
  Report Type: Spontaneous
  Country: US (occurrence: US)
  Receive Date: 20180209
  Receipt Date: 20180212
  Transmission Date: 20180509
  Serious: No
  Sender: FDA-Public Use
  Company Number: US-PFIZER INC-2018051714

PATIENT
  Age: 83 Year
  Sex: Female
  Weight: 58.97 kg

DRUGS (1)
  1. LYRICA [Suspect]
     Active Substance: PREGABALIN
     Indication: FIBROMYALGIA
     Dosage: 50 MG, 3X/DAY
     Route: 048
     Dates: start: 20180202, end: 20180204

REACTIONS (3)
  - Product use issue [Unknown]
  - Swollen tongue [Unknown]
  - Mouth swelling [Recovering/Resolving]

NARRATIVE: CASE EVENT DATE: 20180202
